FAERS Safety Report 25433749 (Version 2)
Quarter: 2025Q4

REPORT INFORMATION
  Report Type: Spontaneous
  Country: US (occurrence: US)
  Receive Date: 20250613
  Receipt Date: 20251003
  Transmission Date: 20260118
  Serious: No
  Sender: GLAXOSMITHKLINE
  Company Number: US-GSK-US2025AMR072487

PATIENT
  Sex: Female

DRUGS (1)
  1. BENLYSTA [Suspect]
     Active Substance: BELIMUMAB
     Indication: Systemic lupus erythematosus
     Dosage: 200 MG, WE
     Dates: start: 202310

REACTIONS (4)
  - Sinusitis [Not Recovered/Not Resolved]
  - Asthma [Not Recovered/Not Resolved]
  - Illness [Unknown]
  - Otitis media [Not Recovered/Not Resolved]
